FAERS Safety Report 7380752-1 (Version None)
Quarter: 2011Q1

REPORT INFORMATION
  Report Type: 
  Country: None (occurrence: None)
  Receive Date: 20110329
  Receipt Date: 20110322
  Transmission Date: 20110831
  Serious: Yes (Hospitalization)
  Sender: FDA-Public Use
  Company Number: A0866322A

PATIENT
  Age: 74 Year
  Sex: Male
  Weight: 50.9 kg

DRUGS (7)
  1. SPIRIVA [Concomitant]
  2. ASPIRIN [Concomitant]
  3. ADVAIR DISKUS 100/50 [Suspect]
     Indication: CHRONIC OBSTRUCTIVE PULMONARY DISEASE
     Dosage: 1PUFF TWICE PER DAY
     Route: 055
     Dates: start: 20090615
  4. FLOMAX [Concomitant]
  5. PROVENTIL [Concomitant]
  6. ALBUTEROL [Concomitant]
  7. LIPITOR [Concomitant]

REACTIONS (5)
  - NERVOUSNESS [None]
  - DYSPNOEA [None]
  - DYSPHONIA [None]
  - WEIGHT DECREASED [None]
  - CANDIDIASIS [None]
